FAERS Safety Report 10922494 (Version 3)
Quarter: 2015Q2

REPORT INFORMATION
  Report Type: Spontaneous
  Country: US (occurrence: US)
  Receive Date: 20150317
  Receipt Date: 20150408
  Transmission Date: 20150821
  Serious: Yes (Other)
  Sender: FDA-Public Use
  Company Number: US-TAKEDA-2015TUS003233

PATIENT
  Age: 29 Year
  Sex: Female
  Weight: 61.22 kg

DRUGS (4)
  1. PRENATAL VITAMINS                  /01549301/ [Concomitant]
     Active Substance: VITAMINS
     Dosage: UNK
  2. ENTYVIO [Suspect]
     Active Substance: VEDOLIZUMAB
     Indication: CROHN^S DISEASE
     Dosage: 300 MG, UNK
     Route: 042
     Dates: start: 20150120, end: 20150309
  3. OBC [Concomitant]
     Dosage: UNK
  4. PROGESTIN-ONLY ORAL CONTRACEPTIVE [Concomitant]
     Dosage: UNK

REACTIONS (6)
  - Nausea [Unknown]
  - Hyperacusis [Unknown]
  - Disturbance in attention [Unknown]
  - Headache [Unknown]
  - Feeling abnormal [Unknown]
  - Vertigo [Unknown]

NARRATIVE: CASE EVENT DATE: 20150310
